FAERS Safety Report 8055320-9 (Version None)
Quarter: 2012Q1

REPORT INFORMATION
  Report Type: 
  Country: None (occurrence: None)
  Receive Date: 20120119
  Receipt Date: 20120109
  Transmission Date: 20120608
  Serious: Yes (Hospitalization)
  Sender: FDA-Public Use
  Company Number: US-BAYER-2011-034119

PATIENT
  Age: 34 Year
  Sex: Female
  Weight: 158.73 kg

DRUGS (5)
  1. MEDROXYPROGESTERONE ACETATE [Concomitant]
     Dosage: 10 MG, UNK
     Route: 048
     Dates: start: 20050425
  2. ALDACTONE [Concomitant]
     Dosage: 50 MG, UNK
     Route: 048
     Dates: start: 20050411, end: 20060306
  3. OXISTAT [Concomitant]
     Dosage: UNK
     Route: 061
     Dates: start: 20050505
  4. HYDROCHLOROTHIAZIDE [Concomitant]
     Dosage: 25 MG, UNK
     Route: 048
     Dates: start: 20050411, end: 20060517
  5. YASMIN [Suspect]
     Dosage: UNK
     Dates: start: 20050505, end: 20050726

REACTIONS (2)
  - PULMONARY EMBOLISM [None]
  - PAIN [None]
